FAERS Safety Report 4911695-8 (Version None)
Quarter: 2006Q1

REPORT INFORMATION
  Report Type: 
  Country: None (occurrence: None)
  Receive Date: 20060213
  Receipt Date: 20060201
  Transmission Date: 20060701
  Serious: Yes (Hospitalization, Other)
  Sender: FDA-Public Use
  Company Number: 2006017721

PATIENT
  Age: 57 Year
  Sex: Male
  Weight: 63.5036 kg

DRUGS (1)
  1. NARDIL [Suspect]
     Indication: PANIC ATTACK
     Dosage: 80 MG (15 MG, 6 IN 1 D), UNKNOWN
     Dates: end: 20060101

REACTIONS (12)
  - ABNORMAL DREAMS [None]
  - DECREASED APPETITE [None]
  - DIARRHOEA [None]
  - DISORIENTATION [None]
  - DRUG WITHDRAWAL SYNDROME [None]
  - FEELING ABNORMAL [None]
  - MYOCLONUS [None]
  - NIGHTMARE [None]
  - PANIC ATTACK [None]
  - READING DISORDER [None]
  - VISION BLURRED [None]
  - WEIGHT DECREASED [None]
